FAERS Safety Report 8170647-8 (Version None)
Quarter: 2012Q1

REPORT INFORMATION
  Report Type: 
  Country: None (occurrence: None)
  Receive Date: 20120104
  Receipt Date: 20111017
  Transmission Date: 20120608
  Serious: No
  Sender: FDA-Public Use
  Company Number: 2011HGS-002649

PATIENT
  Age: 54 Year
  Sex: Female
  Weight: 101.6057 kg

DRUGS (8)
  1. PLAQUENIL [Concomitant]
  2. NEXIUM (ESOMPRAZOLE MAGNESIUM) [Concomitant]
  3. MOBIC [Concomitant]
  4. ORACEA [Concomitant]
  5. BENLYSTA [Suspect]
     Indication: SYSTEMIC LUPUS ERYTHEMATOSUS
     Dosage: 10 MG/KG (EVERY 2 WEEKS X 3 THEN EVERY 4 WEEKS, INTRAVENOUS DRIP
     Route: 041
     Dates: start: 20110916
  6. CALCIUM PLUS VITAMIN D (CALCIUM WITH VITAMIN D) (ERGOCALCIFEROL, CALCI [Concomitant]
  7. TRAMADOL HCL [Concomitant]
  8. CYMBALTA (ANTIDEPRESSANTS) (NULL) [Concomitant]

REACTIONS (3)
  - DIARRHOEA [None]
  - NAUSEA [None]
  - HEADACHE [None]
